FAERS Safety Report 9371816 (Version 1)
Quarter: 2013Q2

REPORT INFORMATION
  Report Type: Report from Study
  Country: US (occurrence: US)
  Receive Date: 20130627
  Receipt Date: 20130627
  Transmission Date: 20140414
  Serious: Yes (Other)
  Sender: FDA-Public Use
  Company Number: US-MYLANLABS-2012S1006403

PATIENT
  Age: 34 Year
  Sex: Male

DRUGS (10)
  1. CLOZAPINE TABLETS [Suspect]
  2. CLOZAPINE TABLETS [Suspect]
     Dates: start: 2008, end: 201302
  3. SERTRALINE [Concomitant]
  4. DEPAKOTE [Concomitant]
  5. GEMFIBROZIL [Concomitant]
  6. DOCUSATE SODIUM [Concomitant]
  7. CLONAZEPAM [Concomitant]
  8. DIPHENHYDRAMINE [Concomitant]
  9. OLANZAPINE [Concomitant]
  10. RISPERIDONE [Concomitant]

REACTIONS (1)
  - Granulocytopenia [Not Recovered/Not Resolved]
